FAERS Safety Report 8785926 (Version 1)
Quarter: 2012Q4

REPORT INFORMATION
  Report Type: 
  Country: RU (occurrence: RU)
  Receive Date: 20120914
  Receipt Date: 20120914
  Transmission Date: 20130627
  Serious: Yes (Other)
  Sender: FDA-Public Use
  Company Number: PHHY2012RU079318

PATIENT

DRUGS (2)
  1. OXCARBAZEPINE [Suspect]
  2. CARBAMAZEPINE [Suspect]

REACTIONS (2)
  - Partial seizures [Unknown]
  - Condition aggravated [Unknown]
